FAERS Safety Report 12165282 (Version 1)
Quarter: 2016Q1

REPORT INFORMATION
  Report Type: Spontaneous
  Country: JP (occurrence: JP)
  Receive Date: 20160309
  Receipt Date: 20160309
  Transmission Date: 20160526
  Serious: Yes (Other)
  Sender: FDA-Public Use
  Company Number: JP-PFIZER INC-2016143703

PATIENT
  Age: 52 Year
  Sex: Female

DRUGS (4)
  1. CERTICAN [Suspect]
     Active Substance: EVEROLIMUS
     Indication: RENAL TRANSPLANT
     Route: 048
  2. ESTRIEL /00162401/ [Suspect]
     Active Substance: ESTRIOL
     Indication: MENOPAUSAL SYMPTOMS
     Route: 048
  3. MEDROL [Suspect]
     Active Substance: METHYLPREDNISOLONE
     Indication: RENAL TRANSPLANT
     Route: 048
  4. GRACEPTOR [Suspect]
     Active Substance: TACROLIMUS
     Indication: RENAL TRANSPLANT
     Route: 048

REACTIONS (1)
  - Deep vein thrombosis [Recovered/Resolved]
